FAERS Safety Report 6154354-9 (Version None)
Quarter: 2009Q2

REPORT INFORMATION
  Report Type: 
  Country: None (occurrence: None)
  Receive Date: 20090410
  Receipt Date: 20090403
  Transmission Date: 20091009
  Serious: Yes (Hospitalization, Other)
  Sender: FDA-Public Use
  Company Number: 2009SP001618

PATIENT
  Age: 58 Year
  Sex: Female
  Weight: 81.4 kg

DRUGS (4)
  1. PEG-INTRON [Suspect]
     Indication: HEPATITIS C
     Dosage: 800 MG;TID;PO
     Route: 048
     Dates: start: 20081219, end: 20090128
  2. BOCEPREVIR (SCH 503034) [Suspect]
     Indication: HEPATITIS C
     Dosage: 150 MCG;QW;SC
     Route: 058
     Dates: start: 20081121, end: 20090123
  3. CENTRUM [Concomitant]
  4. ADVAIR HFA [Concomitant]

REACTIONS (4)
  - ANAEMIA [None]
  - DYSPNOEA [None]
  - PLEURITIC PAIN [None]
  - RESPIRATORY RATE INCREASED [None]
